FAERS Safety Report 13299447 (Version 2)
Quarter: 2017Q2

REPORT INFORMATION
  Report Type: Spontaneous
  Country: US (occurrence: US)
  Receive Date: 20170306
  Receipt Date: 20170425
  Transmission Date: 20170830
  Serious: Yes (Other)
  Sender: FDA-Public Use
  Company Number: US-PFIZER INC-2017093834

PATIENT
  Age: 6 Year
  Sex: Female

DRUGS (6)
  1. QUILLIVANT XR [Suspect]
     Active Substance: METHYLPHENIDATE HYDROCHLORIDE
     Dosage: 50 MG, DAILY
     Route: 048
     Dates: end: 20151105
  2. CLONIDINE. [Concomitant]
     Active Substance: CLONIDINE
     Dosage: UNK
  3. FLOVENT [Concomitant]
     Active Substance: FLUTICASONE PROPIONATE
     Indication: ASTHMA
     Dosage: 2 PUFFS, TWICE DAILY
     Route: 055
     Dates: start: 2011
  4. LORATADINE. [Concomitant]
     Active Substance: LORATADINE
     Indication: RHINITIS ALLERGIC
     Dosage: 10 MG, DAILY
     Dates: start: 2015
  5. QUILLIVANT XR [Suspect]
     Active Substance: METHYLPHENIDATE HYDROCHLORIDE
     Indication: ATTENTION DEFICIT/HYPERACTIVITY DISORDER
     Dosage: 20 MG, 1X/DAY
     Route: 048
     Dates: start: 20140623
  6. SINGULAIR [Concomitant]
     Active Substance: MONTELUKAST SODIUM
     Indication: ASTHMA
     Dosage: 5 MG, AT BEDTIME
     Dates: start: 2011

REACTIONS (1)
  - Growth failure [Recovered/Resolved]

NARRATIVE: CASE EVENT DATE: 201502
